FAERS Safety Report 23633636 (Version 2)
Quarter: 2024Q2

REPORT INFORMATION
  Report Type: Report from Study
  Country: US (occurrence: US)
  Receive Date: 20240314
  Receipt Date: 20240607
  Transmission Date: 20240716
  Serious: Yes (Hospitalization, Other)
  Sender: FDA-Public Use
  Company Number: US-002147023-NVSC2023US066859

PATIENT
  Sex: Female
  Weight: 68.934 kg

DRUGS (4)
  1. TREPROSTINIL [Suspect]
     Active Substance: TREPROSTINIL
     Indication: Pulmonary arterial hypertension
     Dosage: (63 NG/KG/MIN), CONT, CONCENTRATION: 10 MG/ML
     Route: 058
     Dates: start: 20210910
  2. TREPROSTINIL [Suspect]
     Active Substance: TREPROSTINIL
     Dosage: CONT 35 NG/KG/MIN, CONCENTRATION: 5 MG/ML
     Route: 058
     Dates: start: 20210910
  3. TREPROSTINIL [Suspect]
     Active Substance: TREPROSTINIL
     Dosage: DOSE: 29 NG/KG/MIN
     Route: 058
     Dates: start: 20210910
  4. UPTRAVI [Concomitant]
     Active Substance: SELEXIPAG
     Indication: Product used for unknown indication
     Dosage: UNK
     Route: 065

REACTIONS (2)
  - Pancreatitis [Unknown]
  - Nausea [Recovered/Resolved]
